FAERS Safety Report 7030360-7 (Version None)
Quarter: 2010Q4

REPORT INFORMATION
  Report Type: 
  Country: None (occurrence: None)
  Receive Date: 20101006
  Receipt Date: 20100929
  Transmission Date: 20110411
  Serious: Yes (Life-Threatening, Hospitalization, Disabling)
  Sender: FDA-Public Use
  Company Number: JP-BAXTER-2010BH024707

PATIENT
  Age: 4 Year
  Sex: Male
  Weight: 9 kg

DRUGS (16)
  1. FEIBA VH IMMUNO [Suspect]
     Indication: MUSCLE HAEMORRHAGE
     Route: 042
     Dates: start: 20090214, end: 20090217
  2. FEIBA VH IMMUNO [Suspect]
     Indication: FACTOR VIII DEFICIENCY
     Route: 042
     Dates: start: 20090214, end: 20090217
  3. FEIBA VH IMMUNO [Suspect]
     Route: 042
     Dates: start: 20090217, end: 20090218
  4. FEIBA VH IMMUNO [Suspect]
     Route: 042
     Dates: start: 20090217, end: 20090218
  5. FEIBA VH IMMUNO [Suspect]
     Route: 042
     Dates: start: 20090425, end: 20090425
  6. FEIBA VH IMMUNO [Suspect]
     Route: 042
     Dates: start: 20090425, end: 20090425
  7. FEIBA VH IMMUNO [Suspect]
     Route: 042
     Dates: start: 20090426, end: 20090426
  8. FEIBA VH IMMUNO [Suspect]
     Route: 042
     Dates: start: 20090426, end: 20090426
  9. FEIBA VH IMMUNO [Suspect]
     Route: 042
     Dates: start: 20090428, end: 20090428
  10. FEIBA VH IMMUNO [Suspect]
     Route: 042
     Dates: start: 20090428, end: 20090428
  11. FEIBA VH IMMUNO [Suspect]
     Route: 042
     Dates: start: 20090623, end: 20090624
  12. FEIBA VH IMMUNO [Suspect]
     Route: 042
     Dates: start: 20090623, end: 20090624
  13. TOPIRAMATE [Concomitant]
     Indication: EPILEPSY
     Route: 048
  14. VALPROIC ACID [Concomitant]
     Indication: EPILEPSY
     Route: 048
  15. LAMOTRIGINE [Concomitant]
     Indication: EPILEPSY
     Route: 048
  16. THYRADIN [Concomitant]
     Indication: HYPOTHYROIDISM
     Route: 048

REACTIONS (1)
  - HAEMORRHAGE INTRACRANIAL [None]
